FAERS Safety Report 13523657 (Version 1)
Quarter: 2017Q2

REPORT INFORMATION
  Report Type: Spontaneous
  Country: US (occurrence: US)
  Receive Date: 20170508
  Receipt Date: 20170508
  Transmission Date: 20170830
  Serious: No
  Sender: FDA-Public Use
  Company Number: US-VIFOR (INTERNATIONAL) INC.-VIT-2017-00865

PATIENT
  Age: 67 Year
  Sex: Female

DRUGS (14)
  1. SODIUM BICARBONATE. [Concomitant]
     Active Substance: SODIUM BICARBONATE
  2. VELTASSA [Suspect]
     Active Substance: PATIROMER
     Indication: HYPERKALAEMIA
     Route: 048
     Dates: start: 201701
  3. EMTRIVA [Concomitant]
     Active Substance: EMTRICITABINE
  4. MECLIZINE [Concomitant]
     Active Substance: MECLIZINE HYDROCHLORIDE
  5. VIREAD [Concomitant]
     Active Substance: TENOFOVIR DISOPROXIL FUMARATE
  6. METOPROLOL SUCCINATE. [Concomitant]
     Active Substance: METOPROLOL SUCCINATE
  7. SUSTIVA [Concomitant]
     Active Substance: EFAVIRENZ
  8. ATORVASTATIN [Concomitant]
     Active Substance: ATORVASTATIN
  9. ESCITALOPRAM [Concomitant]
     Active Substance: ESCITALOPRAM OXALATE
  10. FUROSEMIDE. [Concomitant]
     Active Substance: FUROSEMIDE
  11. TRAMADOL. [Concomitant]
     Active Substance: TRAMADOL
  12. ZETIA [Concomitant]
     Active Substance: EZETIMIBE
  13. VELTASSA [Suspect]
     Active Substance: PATIROMER
     Dates: start: 20170120
  14. BUPROPION. [Concomitant]
     Active Substance: BUPROPION

REACTIONS (2)
  - Off label use [Recovered/Resolved]
  - No adverse event [Recovered/Resolved]

NARRATIVE: CASE EVENT DATE: 201701
